FAERS Safety Report 11246552 (Version 2)
Quarter: 2015Q3

REPORT INFORMATION
  Report Type: Spontaneous
  Country: DE (occurrence: None)
  Receive Date: 20150706
  Receipt Date: 20150715
  Transmission Date: 20151125
  Serious: Yes (Hospitalization)
  Sender: FDA-Public Use
  Company Number: UCM201506-000454

PATIENT
  Age: 60 Year
  Sex: Female

DRUGS (8)
  1. LITHIUM. [Suspect]
     Active Substance: LITHIUM
  2. PIPAMPERONE [Suspect]
     Active Substance: PIPAMPERONE
  3. HYDROCHLOROTHIAZIDE (HYDROCHLOROTHIAZIDE) (HYDROCHLOROTHIAZIDE) [Suspect]
     Active Substance: HYDROCHLOROTHIAZIDE
  4. GLIMEPIRIDE. [Concomitant]
     Active Substance: GLIMEPIRIDE
  5. LEVOTHYROXINE SODIUM. [Concomitant]
     Active Substance: LEVOTHYROXINE SODIUM
  6. CHLORPROTHIXENE [Suspect]
     Active Substance: CHLORPROTHIXENE
  7. VALSARTAN (VALSARTAN) (VALSARTAN) [Suspect]
     Active Substance: VALSARTAN
  8. QUETIAPINE (QUETIAPINE) (QUETIAPINE) [Suspect]
     Active Substance: QUETIAPINE

REACTIONS (19)
  - Blindness cortical [None]
  - Acute kidney injury [None]
  - Rhabdomyolysis [None]
  - Dysarthria [None]
  - CSF protein increased [None]
  - Toxicity to various agents [None]
  - Myoclonus [None]
  - Somnolence [None]
  - Disorientation [None]
  - Restlessness [None]
  - Blood sodium increased [None]
  - Withdrawal hypertension [None]
  - Mood swings [None]
  - Drug clearance decreased [None]
  - Blood glucose increased [None]
  - Posterior reversible encephalopathy syndrome [None]
  - Agitation [None]
  - Hypotension [None]
  - Unresponsive to stimuli [None]
